FAERS Safety Report 6407578-7 (Version None)
Quarter: 2009Q4

REPORT INFORMATION
  Report Type: 
  Country: None (occurrence: None)
  Receive Date: 20091020
  Receipt Date: 20091012
  Transmission Date: 20100525
  Serious: Yes (Other)
  Sender: FDA-Public Use
  Company Number: JP-GENENTECH-292468

PATIENT

DRUGS (1)
  1. AVASTIN [Suspect]
     Indication: CHOROIDAL NEOVASCULARISATION
     Dosage: 1 MG, UNK
     Route: 031

REACTIONS (3)
  - CHOROIDAL NEOVASCULARISATION [None]
  - MACULAR OEDEMA [None]
  - MEDICATION ERROR [None]
